FAERS Safety Report 5985712-0 (Version None)
Quarter: 2008Q4

REPORT INFORMATION
  Report Type: 
  Country: None (occurrence: None)
  Receive Date: 20081208
  Receipt Date: 20080328
  Transmission Date: 20090506
  Serious: No
  Sender: FDA-Public Use
  Company Number: US-AMGEN-KDL271808

PATIENT
  Sex: Female

DRUGS (1)
  1. ENBREL [Suspect]
     Indication: RHEUMATOID ARTHRITIS
     Dates: start: 20031101

REACTIONS (6)
  - HEADACHE [None]
  - IMPAIRED HEALING [None]
  - MELANOCYTIC NAEVUS [None]
  - MENORRHAGIA [None]
  - RHEUMATOID ARTHRITIS [None]
  - SKIN FISSURES [None]
